FAERS Safety Report 7980234 (Version 3)
Quarter: 2014Q1

REPORT INFORMATION
  Report Type: Spontaneous
  Country: CA (occurrence: CA)
  Receive Date: 20110608
  Receipt Date: 20140219
  Transmission Date: 20141002
  Serious: Yes (Other)
  Sender: FDA-Public Use
  Company Number: CA-PFIZER INC-2011122248

PATIENT
  Sex: Male

DRUGS (4)
  1. VENLAFAXINE HCL [Suspect]
     Indication: DEPRESSION
     Dosage: 225 MG DAILY
     Dates: start: 2006
  2. VENLAFAXINE HCL [Suspect]
     Indication: SOCIAL AVOIDANT BEHAVIOUR
  3. VENLAFAXINE HCL [Suspect]
     Indication: ANXIETY
  4. VENLAFAXINE HCL [Suspect]
     Indication: DYSPHAGIA

REACTIONS (9)
  - Homicide [Unknown]
  - Mental status changes [Unknown]
  - Paraphilia [Unknown]
  - Judgement impaired [Unknown]
  - Agitation [Unknown]
  - Reactive psychosis [Unknown]
  - Hypomania [Unknown]
  - Theft [Unknown]
  - Abnormal behaviour [Unknown]
